FAERS Safety Report 4901517-3 (Version None)
Quarter: 2006Q1

REPORT INFORMATION
  Report Type: 
  Country: None (occurrence: None)
  Receive Date: 20060203
  Receipt Date: 20060203
  Transmission Date: 20060701
  Serious: Yes (Death)
  Sender: FDA-Public Use
  Company Number: None

PATIENT
  Age: 54 Year
  Sex: Male
  Weight: 45.3597 kg

DRUGS (1)
  1. VITAMIN E [Suspect]

REACTIONS (1)
  - DEATH [None]
